FAERS Safety Report 4359033-6 (Version None)
Quarter: 2004Q2

REPORT INFORMATION
  Report Type: 
  Country: None (occurrence: None)
  Receive Date: 20040517
  Receipt Date: 20040330
  Transmission Date: 20050107
  Serious: Yes (Other)
  Sender: FDA-Public Use
  Company Number: ZA-GLAXOSMITHKLINE-B0328475A

PATIENT
  Age: 56 Year
  Sex: Female
  Weight: 63 kg

DRUGS (1)
  1. ZYBAN [Suspect]
     Indication: EX-SMOKER
     Dosage: 150MG TWICE PER DAY
     Dates: start: 20030101, end: 20031001

REACTIONS (8)
  - BITE [None]
  - DEAFNESS [None]
  - DIZZINESS [None]
  - FEELING ABNORMAL [None]
  - MYOCLONUS [None]
  - PALPITATIONS [None]
  - TINNITUS [None]
  - TONGUE BITING [None]
